FAERS Safety Report 7368720-7 (Version None)
Quarter: 2011Q1

REPORT INFORMATION
  Report Type: 
  Country: None (occurrence: None)
  Receive Date: 20110304
  Receipt Date: 20110224
  Transmission Date: 20110831
  Serious: Yes (Hospitalization, Disabling)
  Sender: FDA-Public Use
  Company Number: 2007-152597-NL

PATIENT
  Age: 23 Year
  Sex: Female
  Weight: 73.9 kg

DRUGS (3)
  1. NEXIUM [Concomitant]
  2. NUVARING [Suspect]
     Indication: CONTRACEPTION
     Dosage: VAG
     Route: 067
     Dates: start: 20050801
  3. ORTHO EVRA [Suspect]
     Indication: PRODUCT USED FOR UNKNOWN INDICATION
     Dosage: TDER
     Route: 062
     Dates: start: 20030301

REACTIONS (36)
  - ARTERIAL OCCLUSIVE DISEASE [None]
  - ARRHYTHMIA [None]
  - MUSCLE SPASMS [None]
  - OBESITY [None]
  - PANIC ATTACK [None]
  - PALPITATIONS [None]
  - HYPERCOAGULATION [None]
  - DEPRESSION [None]
  - INTERMITTENT CLAUDICATION [None]
  - CORONARY ARTERY THROMBOSIS [None]
  - CHEST PAIN [None]
  - ISCHAEMIC CARDIOMYOPATHY [None]
  - DYSPNOEA [None]
  - CONTUSION [None]
  - DYSTHYMIC DISORDER [None]
  - ILIAC ARTERY THROMBOSIS [None]
  - PERICARDIAL EFFUSION [None]
  - DYSLIPIDAEMIA [None]
  - PERIPHERAL ARTERIAL OCCLUSIVE DISEASE [None]
  - REFUSAL OF TREATMENT BY PATIENT [None]
  - SINUS TACHYCARDIA [None]
  - PROTEIN S DEFICIENCY [None]
  - ROAD TRAFFIC ACCIDENT [None]
  - HERPES SIMPLEX [None]
  - COGNITIVE DISORDER [None]
  - PREGNANCY [None]
  - MYOCARDIAL INFARCTION [None]
  - ECONOMIC PROBLEM [None]
  - ABORTION [None]
  - INTERNATIONAL NORMALISED RATIO DECREASED [None]
  - TRICUSPID VALVE INCOMPETENCE [None]
  - ACUTE MYOCARDIAL INFARCTION [None]
  - MUSCLE STRAIN [None]
  - MITRAL VALVE INCOMPETENCE [None]
  - NECK PAIN [None]
  - SUPRAVENTRICULAR TACHYCARDIA [None]
